FAERS Safety Report 8389819 (Version 3)
Quarter: 2012Q4

REPORT INFORMATION
  Report Type: Report from Study
  Country: US (occurrence: US)
  Receive Date: 20120203
  Receipt Date: 20121004
  Transmission Date: 20130627
  Serious: Yes (Hospitalization)
  Sender: FDA-Public Use
  Company Number: US-ABBOTT-12P-163-0898705-00

PATIENT
  Age: 20 None
  Sex: Female
  Weight: 55.39 kg

DRUGS (7)
  1. HUMIRA 40 MG/0.8 ML PEN [Suspect]
     Indication: RHEUMATOID ARTHRITIS
     Dates: end: 201003
  2. HUMIRA 40 MG/0.8 ML PEN [Suspect]
     Dates: start: 201006
  3. VIMOVO [Concomitant]
     Indication: CHEST PAIN
     Dosage: As needed, takes rarely
  4. VIMOVO [Concomitant]
     Indication: INFLAMMATION
  5. VIMOVO [Concomitant]
     Indication: ARTHRITIS
  6. FOLIC ACID [Concomitant]
     Indication: VITAMIN SUPPLEMENTATION
  7. VITAMIN D [Concomitant]
     Indication: VITAMIN SUPPLEMENTATION

REACTIONS (5)
  - Menorrhagia [Recovered/Resolved]
  - Thrombosis [Recovered/Resolved]
  - Rash macular [Recovered/Resolved]
  - Idiopathic thrombocytopenic purpura [Recovered/Resolved]
  - Blood test abnormal [Recovered/Resolved]
